FAERS Safety Report 11913409 (Version 2)
Quarter: 2016Q2

REPORT INFORMATION
  Report Type: Spontaneous
  Country: US (occurrence: US)
  Receive Date: 20160113
  Receipt Date: 20160523
  Transmission Date: 20160815
  Serious: Yes (Other)
  Sender: FDA-Public Use
  Company Number: US-NAVIDEA BIOPHARMACEUTICALS-NVUS1600-15-00045

PATIENT
  Sex: Female

DRUGS (1)
  1. LYMPHOSEEK [Suspect]
     Active Substance: TECHNETIUM TC-99M TILMANOCEPT
     Indication: LYMPHATIC MAPPING
     Route: 023

REACTIONS (5)
  - Injection site pain [Recovered/Resolved]
  - Presyncope [Recovered/Resolved]
  - Syncope [None]
  - Seizure [None]
  - Erythema [Recovered/Resolved]

NARRATIVE: CASE EVENT DATE: 20150923
